FAERS Safety Report 23972829 (Version 2)
Quarter: 2024Q4

REPORT INFORMATION
  Report Type: Spontaneous
  Country: FR (occurrence: FR)
  Receive Date: 20240613
  Receipt Date: 20241008
  Transmission Date: 20250114
  Serious: Yes (Hospitalization)
  Sender: FRESENIUS KABI
  Company Number: FR-GILEAD-2024-0675532

PATIENT
  Sex: Male
  Weight: 72 kg

DRUGS (2)
  1. CARBOPLATIN [Suspect]
     Active Substance: CARBOPLATIN
     Indication: Transitional cell carcinoma
     Dosage: 550 MG, D1 EVERY 21 DAYS?FOA: INJECTION
     Route: 042
     Dates: start: 20240423, end: 20240528
  2. GEMCITABINE [Suspect]
     Active Substance: GEMCITABINE
     Indication: Transitional cell carcinoma
     Dosage: 1920 MG, D1 AND D8 EVERY 21 DAYS?FOA: SOLUTION FOR INFUSION
     Route: 042
     Dates: start: 20240423, end: 20240528

REACTIONS (2)
  - Asthenia [Recovered/Resolved]
  - General physical condition abnormal [Not Recovered/Not Resolved]

NARRATIVE: CASE EVENT DATE: 20240530
